FAERS Safety Report 5218081-4 (Version None)
Quarter: 2007Q1

REPORT INFORMATION
  Report Type: 
  Country: None (occurrence: None)
  Receive Date: 20061130
  Receipt Date: 20060620
  Transmission Date: 20070707
  Serious: Yes (Hospitalization)
  Sender: FDA-Public Use
  Company Number: US200605004096

PATIENT
  Age: 40 Year
  Sex: Male
  Weight: 120.2 kg

DRUGS (6)
  1. ZYPREXA [Suspect]
     Dosage: ORAL
     Route: 048
     Dates: start: 20001201, end: 20050101
  2. ABILIFY /USA/ (AIRPIPRAZOLE) [Concomitant]
  3. SEROQUEL [Concomitant]
  4. RISPERIDONE *JANSSEN* (RISPERIDONE) [Concomitant]
  5. GEODON [Concomitant]
  6. LITHIUM CARBONATE [Concomitant]

REACTIONS (10)
  - ANGIOPATHY [None]
  - BLOOD CHOLESTEROL ABNORMAL [None]
  - BLOOD TRIGLYCERIDES INCREASED [None]
  - DIABETES MELLITUS [None]
  - HYPERPHAGIA [None]
  - HYPERTENSION [None]
  - OBESITY [None]
  - POLYDIPSIA [None]
  - POLYURIA [None]
  - VISION BLURRED [None]
